FAERS Safety Report 9467651 (Version 1)
Quarter: 2013Q3

REPORT INFORMATION
  Report Type: Spontaneous
  Country: US (occurrence: None)
  Receive Date: 20130819
  Receipt Date: 20130819
  Transmission Date: 20140515
  Serious: Yes (Disabling, Other)
  Sender: FDA-Public Use
  Company Number: None

PATIENT
  Age: 51 Year
  Sex: Female

DRUGS (1)
  1. LEVAQUIN [Suspect]
     Indication: CHRONIC SINUSITIS
     Dosage: 1 PILL  ONCE DAILY  TAKEN BY MOUTH?IN SPURTS THROUGHOUT DECADE
     Route: 048

REACTIONS (7)
  - Muscle spasms [None]
  - Monoparesis [None]
  - Hypoaesthesia [None]
  - Exercise tolerance decreased [None]
  - Gait disturbance [None]
  - Fibromyalgia [None]
  - Amnesia [None]
